FAERS Safety Report 8576263-8 (Version None)
Quarter: 2012Q3

REPORT INFORMATION
  Report Type: 
  Country: None (occurrence: None)
  Receive Date: 20120807
  Receipt Date: 20120803
  Transmission Date: 20120928
  Serious: Yes (Death, Other)
  Sender: FDA-Public Use
  Company Number: PHHY2012MX067851

PATIENT
  Sex: Female

DRUGS (1)
  1. EXFORGE [Suspect]
     Indication: HYPERTENSION
     Dosage: 1 DF (160/5 MG), PER DAY
     Dates: start: 20120411

REACTIONS (3)
  - VASCULAR GRAFT [None]
  - PROCEDURAL COMPLICATION [None]
  - MUSCLE NEOPLASM [None]
